FAERS Safety Report 6817016-8 (Version None)
Quarter: 2010Q3

REPORT INFORMATION
  Report Type: 
  Country: None (occurrence: None)
  Receive Date: 20100706
  Receipt Date: 20100625
  Transmission Date: 20110219
  Serious: Yes (Hospitalization)
  Sender: FDA-Public Use
  Company Number: GXKR2010GB07115

PATIENT
  Age: 75 Year
  Sex: Male

DRUGS (7)
  1. ATENOLOL (NGX) [Suspect]
     Indication: HYPERTENSION
     Dosage: 25 MG, UNK
     Route: 048
     Dates: end: 20100419
  2. AMLODIPINE [Concomitant]
     Dosage: 10 MG, UNK
     Route: 048
     Dates: end: 20100419
  3. ACETYLSALICYLIC ACID [Concomitant]
     Dosage: 75 MG, UNK
     Route: 048
  4. ATORVASTATIN [Concomitant]
     Dosage: 60 MG, UNK
     Route: 048
  5. BENDROFLUMETHIAZIDE [Concomitant]
     Dosage: 2.5 MG, UNK
     Route: 048
     Dates: end: 20100419
  6. PAROXETINE [Concomitant]
     Dosage: 20 MG, QD
     Route: 048
  7. RAMIPRIL [Concomitant]
     Dosage: 10 MG, UNK
     Route: 048

REACTIONS (1)
  - ATRIOVENTRICULAR BLOCK COMPLETE [None]
